FAERS Safety Report 4325702-7 (Version None)
Quarter: 2004Q1

REPORT INFORMATION
  Report Type: 
  Country: None (occurrence: None)
  Receive Date: 20040324
  Receipt Date: 20040309
  Transmission Date: 20041129
  Serious: Yes (Death, Hospitalization)
  Sender: FDA-Public Use
  Company Number: EWC031237236

PATIENT
  Age: 72 Year
  Sex: Male
  Weight: 76 kg

DRUGS (12)
  1. PEMETREXED (LY231514) [Suspect]
     Indication: MESOTHELIOMA
     Dosage: 500 MG/M2/1 OTHER
     Dates: start: 20031120
  2. FOLIC ACID [Concomitant]
  3. VITAMIN B-12 [Concomitant]
  4. METHYLPREDNISOLONE [Concomitant]
  5. EPOGEN [Concomitant]
  6. OMEPRAZOLE [Concomitant]
  7. LAXATIVES [Concomitant]
  8. FENTANYL [Concomitant]
  9. VENLAFAXINE HCL [Concomitant]
  10. PIPERACILLIN [Concomitant]
  11. RED BLOOD CELLS [Concomitant]
  12. PLATELETS [Concomitant]

REACTIONS (12)
  - CONSTIPATION [None]
  - DIARRHOEA [None]
  - DISSEMINATED INTRAVASCULAR COAGULATION [None]
  - FATIGUE [None]
  - FEBRILE NEUTROPENIA [None]
  - HAEMORRHAGE [None]
  - NAUSEA [None]
  - NEUTROPENIC SEPSIS [None]
  - PANCYTOPENIA [None]
  - SEPSIS [None]
  - STOMATITIS [None]
  - VOMITING [None]
